FAERS Safety Report 9731611 (Version 1)
Quarter: 2013Q4

REPORT INFORMATION
  Report Type: Spontaneous
  Country: US (occurrence: None)
  Receive Date: 20131204
  Receipt Date: 20131204
  Transmission Date: 20140711
  Serious: Yes (Other)
  Sender: FDA-Public Use
  Company Number: None

PATIENT
  Age: 61 Year
  Sex: Female
  Weight: 68.95 kg

DRUGS (4)
  1. PROPOFOL [Suspect]
  2. ESCITALOPRAM [Concomitant]
  3. WELLBUTRIN [Concomitant]
  4. VITAMIN B12 [Concomitant]

REACTIONS (13)
  - Pain [None]
  - Toothache [None]
  - Chills [None]
  - Hyperhidrosis [None]
  - Cough [None]
  - Rhinorrhoea [None]
  - Thirst [None]
  - Confusional state [None]
  - Orthostatic hypotension [None]
  - Hallucination, auditory [None]
  - Fatigue [None]
  - Middle insomnia [None]
  - Screaming [None]
